FAERS Safety Report 18125281 (Version 1)
Quarter: 2020Q3

REPORT INFORMATION
  Report Type: Spontaneous
  Country: US (occurrence: US)
  Receive Date: 20200807
  Receipt Date: 20200807
  Transmission Date: 20201103
  Serious: Yes (Hospitalization, Other)
  Sender: FDA-Public Use
  Company Number: US-PURDUE-USA-2020-0159849

PATIENT
  Sex: Female

DRUGS (2)
  1. SUBOXONE [Suspect]
     Active Substance: BUPRENORPHINE HYDROCHLORIDE\NALOXONE HYDROCHLORIDE
     Indication: PRODUCT USED FOR UNKNOWN INDICATION
     Dosage: UNK
     Route: 065
  2. MORPHINE SULFATE (SIMILAR TO NDA 19?516) [Suspect]
     Active Substance: MORPHINE SULFATE
     Indication: PRODUCT USED FOR UNKNOWN INDICATION
     Dosage: UNK
     Route: 065

REACTIONS (19)
  - Drug withdrawal syndrome neonatal [Unknown]
  - Tremor [Unknown]
  - Hospitalisation [Unknown]
  - Respiration abnormal [Unknown]
  - Initial insomnia [Unknown]
  - Seizure [Unknown]
  - Unevaluable event [Unknown]
  - Foetal exposure during pregnancy [Unknown]
  - Hypertonia neonatal [Unknown]
  - Diarrhoea neonatal [Unknown]
  - Poor feeding infant [Unknown]
  - Weight gain poor [Unknown]
  - Rash macular [Unknown]
  - High-pitched crying [Unknown]
  - Nasal congestion [Unknown]
  - Jaundice [Unknown]
  - Vomiting [Unknown]
  - Fever neonatal [Unknown]
  - Muscle twitching [Unknown]
